FAERS Safety Report 20878203 (Version 1)
Quarter: 2022Q2

REPORT INFORMATION
  Report Type: Spontaneous
  Country: US (occurrence: US)
  Receive Date: 20220526
  Receipt Date: 20220526
  Transmission Date: 20220720
  Serious: No
  Sender: FDA-Public Use
  Company Number: US-HORIZON THERAPEUTICS-HZN-2021-000918

PATIENT
  Sex: Male

DRUGS (4)
  1. RAYOS [Suspect]
     Active Substance: PREDNISONE
     Indication: Rheumatoid arthritis
     Dosage: 2 DOSAGE FORM, QD
     Route: 048
  2. RAYOS [Suspect]
     Active Substance: PREDNISONE
     Dosage: 1 MG, BID
     Route: 048
     Dates: start: 201808
  3. RAYOS [Suspect]
     Active Substance: PREDNISONE
     Dosage: 1 MG (TAKE ONE - TWO TABLETS AT BEDTIME )
     Route: 048
  4. WELLBUTRIN [Suspect]
     Active Substance: BUPROPION HYDROCHLORIDE
     Route: 065

REACTIONS (5)
  - Anxiety [Unknown]
  - Limb injury [Unknown]
  - Fatigue [Recovered/Resolved]
  - Pain [Recovered/Resolved]
  - Malaise [Unknown]
